FAERS Safety Report 19018688 (Version 2)
Quarter: 2021Q1

REPORT INFORMATION
  Report Type: Spontaneous
  Country: US (occurrence: US)
  Receive Date: 20210317
  Receipt Date: 20210317
  Transmission Date: 20210420
  Serious: Yes (Disabling, Other)
  Sender: FDA-Public Use
  Company Number: US-GILEAD-2021-0520118

PATIENT
  Sex: Female

DRUGS (1)
  1. HARVONI [Suspect]
     Active Substance: LEDIPASVIR\SOFOSBUVIR
     Indication: HEPATITIS C
     Dosage: UNK
     Route: 065
     Dates: start: 2016

REACTIONS (7)
  - Overdose [Unknown]
  - Product use issue [Unknown]
  - Anaemia [Unknown]
  - Coma [Unknown]
  - Pulmonary embolism [Unknown]
  - Emotional disorder [Unknown]
  - Pneumothorax [Unknown]

NARRATIVE: CASE EVENT DATE: 2016
